FAERS Safety Report 9668953 (Version 2)
Quarter: 2013Q4

REPORT INFORMATION
  Report Type: Spontaneous
  Country: FR (occurrence: FR)
  Receive Date: 20131105
  Receipt Date: 20131121
  Transmission Date: 20140711
  Serious: Yes (Life-Threatening, Hospitalization)
  Sender: FDA-Public Use
  Company Number: FR-ASTRAZENECA-2013SE79839

PATIENT
  Age: 74 Year
  Sex: Female

DRUGS (8)
  1. AVLOCARDYL [Suspect]
     Route: 048
     Dates: end: 20130922
  2. XEROQUEL [Suspect]
     Route: 048
     Dates: start: 201307, end: 20130909
  3. ABILIFY [Suspect]
     Route: 048
  4. ABILIFY [Suspect]
     Route: 048
     Dates: end: 201307
  5. MONO TILDIEM [Suspect]
     Route: 048
     Dates: end: 20130905
  6. MEDIATENSYL [Concomitant]
     Route: 048
     Dates: start: 201309, end: 2013
  7. AMLODIPINE [Concomitant]
     Route: 048
     Dates: start: 201309
  8. SEROPLEX [Concomitant]
     Dates: end: 201310

REACTIONS (9)
  - Electrocardiogram abnormal [Recovered/Resolved]
  - Malaise [Recovered/Resolved]
  - Respiratory distress [Unknown]
  - Fall [Unknown]
  - Sinus bradycardia [Recovered/Resolved]
  - Dyskinesia [Recovering/Resolving]
  - Eyelid ptosis [Unknown]
  - Pneumonia aspiration [Recovered/Resolved]
  - Dysphagia [Not Recovered/Not Resolved]
